FAERS Safety Report 13776536 (Version 1)
Quarter: 2017Q3

REPORT INFORMATION
  Report Type: Spontaneous
  Country: US (occurrence: US)
  Receive Date: 20170721
  Receipt Date: 20170721
  Transmission Date: 20171127
  Serious: Yes (Death)
  Sender: FDA-Public Use
  Company Number: None

PATIENT
  Age: 87 Year
  Sex: Male

DRUGS (5)
  1. LUPRON DEPOT [Suspect]
     Active Substance: LEUPROLIDE ACETATE
     Indication: PROSTATE CANCER
     Dosage: Q 6 MONHTS
     Route: 030
     Dates: start: 20150804
  2. CENTRUM [Concomitant]
     Active Substance: VITAMINS
  3. ENALAPRIL [Concomitant]
     Active Substance: ENALAPRIL
  4. FINASTERIDE. [Concomitant]
     Active Substance: FINASTERIDE
  5. PRESERVISION [Concomitant]
     Active Substance: MINERALS\VITAMINS

REACTIONS (1)
  - Death [None]
